FAERS Safety Report 6165233-5 (Version None)
Quarter: 2009Q2

REPORT INFORMATION
  Report Type: 
  Country: None (occurrence: None)
  Receive Date: 20090423
  Receipt Date: 20090414
  Transmission Date: 20091009
  Serious: Yes (Hospitalization)
  Sender: FDA-Public Use
  Company Number: US-PFIZER INC-2009197269

PATIENT
  Sex: Male

DRUGS (3)
  1. VORICONAZOLE [Suspect]
     Dosage: 79 MG, 2X/DAY
     Route: 042
     Dates: start: 20090123, end: 20090129
  2. VORICONAZOLE [Suspect]
     Dosage: 87 MG, 2X/DAY
     Route: 042
     Dates: start: 20090130, end: 20090215
  3. VORICONAZOLE [Suspect]
     Dosage: 90 MG, 2X/DAY
     Route: 048
     Dates: start: 20090216, end: 20090313

REACTIONS (5)
  - CATHETER REMOVAL [None]
  - CELLULITIS [None]
  - CYTOMEGALOVIRUS INFECTION [None]
  - GRAFT VERSUS HOST DISEASE [None]
  - HEPATIC ENZYME INCREASED [None]
